FAERS Safety Report 13647562 (Version 6)
Quarter: 2017Q4

REPORT INFORMATION
  Report Type: Report from Study
  Country: US (occurrence: US)
  Receive Date: 20170613
  Receipt Date: 20171102
  Transmission Date: 20180320
  Serious: Yes (Hospitalization)
  Sender: FDA-Public Use
  Company Number: US-ROCHE-1949681

PATIENT
  Age: 51 Year
  Sex: Female
  Weight: 77 kg

DRUGS (13)
  1. BLINDED ENTINOSTAT [Suspect]
     Active Substance: ENTINOSTAT
     Indication: BREAST CANCER
     Dosage: CYCLE 1
     Route: 048
     Dates: start: 20170420, end: 20170504
  2. LEVOTHYROXINE. [Concomitant]
     Active Substance: LEVOTHYROXINE
     Route: 065
     Dates: start: 1999
  3. INSULIN GLARGINE [Concomitant]
     Active Substance: INSULIN GLARGINE
     Route: 065
     Dates: start: 201612
  4. BLINDED ENTINOSTAT [Suspect]
     Active Substance: ENTINOSTAT
     Dosage: MOST RECENT DOSE ON 25/MAY/2017
     Route: 048
     Dates: start: 20170511
  5. ARIXTRA [Concomitant]
     Active Substance: FONDAPARINUX SODIUM
     Route: 065
     Dates: start: 20170522
  6. ENOXAPARIN [Concomitant]
     Active Substance: ENOXAPARIN
     Route: 065
     Dates: start: 20170320, end: 20170507
  7. ATENOLOL. [Concomitant]
     Active Substance: ATENOLOL
     Route: 065
     Dates: start: 20170412
  8. QVAR [Concomitant]
     Active Substance: BECLOMETHASONE DIPROPIONATE
     Dosage: INHALER
     Route: 065
     Dates: start: 20170518
  9. TUSSIONEX PENNKINETIC [Concomitant]
     Active Substance: CHLORPHENIRAMINE\HYDROCODONE
     Route: 065
     Dates: start: 201612
  10. SINGULAIR [Concomitant]
     Active Substance: MONTELUKAST SODIUM
     Route: 065
     Dates: start: 20170518
  11. ATEZOLIZUMAB. [Suspect]
     Active Substance: ATEZOLIZUMAB
     Indication: BREAST CANCER
     Dosage: MOST RECENT DOSE ON 11/MAY/2017
     Route: 042
     Dates: start: 20170420
  12. CLARITIN (UNITED STATES) [Concomitant]
     Route: 065
     Dates: start: 1997, end: 20170525
  13. CLONAZEPAM. [Concomitant]
     Active Substance: CLONAZEPAM
     Route: 065
     Dates: start: 2012

REACTIONS (1)
  - Haemoptysis [Recovered/Resolved]

NARRATIVE: CASE EVENT DATE: 20170528
